FAERS Safety Report 16482718 (Version 8)
Quarter: 2021Q4

REPORT INFORMATION
  Report Type: Report from Study
  Country: US (occurrence: None)
  Receive Date: 20190627
  Receipt Date: 20211117
  Transmission Date: 20220303
  Serious: Yes (Hospitalization)
  Sender: FDA-Public Use
  Company Number: US-ROCHE-2341884

PATIENT
  Age: 65 Year
  Sex: Female
  Weight: 60.5 kg

DRUGS (24)
  1. ATEZOLIZUMAB [Suspect]
     Active Substance: ATEZOLIZUMAB
     Indication: Ovarian cancer
     Dosage: DATE OF THE MOST RECENT DOSE OF BLINDED ATEZOLZUMAB PRIOR TO EVENT ONSET: 11/JUN/2019
     Route: 042
     Dates: start: 20181204
  2. PACLITAXEL [Suspect]
     Active Substance: PACLITAXEL
     Indication: Ovarian cancer
     Dosage: DATE OF THE MOST RECENT DOSE (306 MG) OF PACLITAXEL PRIOR TO EVENT ONSET: 19/MAR/2019
     Route: 042
     Dates: start: 20181204
  3. CARBOPLATIN [Suspect]
     Active Substance: CARBOPLATIN
     Indication: Ovarian cancer
     Dosage: AREA UNDER THE CURVE (AUC) OF 6 MILLIGRAMS PER MILLILITER*MINUTE (MG/ML*MIN)?DATE OF THE MOST RECENT
     Route: 042
     Dates: start: 20181204
  4. BEVACIZUMAB [Suspect]
     Active Substance: BEVACIZUMAB
     Indication: Ovarian cancer
     Dosage: DATE OF THE MOST RECENT DOSE (953 MG) OF BEVACIZUMAB PRIOR TO EVENT ONSET: 11/JUN/2019
     Route: 042
     Dates: start: 20181226
  5. TRIAMCINOLONE [Concomitant]
     Active Substance: TRIAMCINOLONE
     Indication: Eczema
     Dosage: DOSE: 0.1
     Route: 061
  6. POTASSIUM [Concomitant]
     Active Substance: POTASSIUM
     Dates: start: 20181009
  7. MAGNESIUM GLUCONATE [Concomitant]
     Active Substance: MAGNESIUM GLUCONATE
     Indication: Prophylaxis
     Dates: start: 20181009
  8. CHONDROITIN SULFATE;GLUCOSAMINE HYDROCHLORIDE [Concomitant]
     Indication: Osteopenia
     Dates: start: 20181009
  9. COENZYME Q10 [Concomitant]
     Active Substance: DIETARY SUPPLEMENT\UBIDECARENONE
     Dates: start: 20181009
  10. CHOLECALCIFEROL [Concomitant]
     Active Substance: CHOLECALCIFEROL
     Dates: start: 20181009
  11. FLUTICASONE [Concomitant]
     Active Substance: FLUTICASONE
     Indication: Hypersensitivity
     Dates: start: 20170829
  12. ALENDRONATE [Concomitant]
     Active Substance: ALENDRONATE SODIUM
     Indication: Osteoporosis prophylaxis
     Dates: start: 20170926
  13. FEXOFENADINE [Concomitant]
     Active Substance: FEXOFENADINE HYDROCHLORIDE
     Indication: Hypersensitivity
     Dates: start: 20180228
  14. MIRTAZAPINE [Concomitant]
     Active Substance: MIRTAZAPINE
     Indication: Major depression
     Dates: start: 20180718
  15. CARVEDILOL [Concomitant]
     Active Substance: CARVEDILOL
     Indication: Hypertension
     Dates: start: 20180902
  16. ALPRAZOLAM [Concomitant]
     Active Substance: ALPRAZOLAM
     Indication: Major depression
     Dates: start: 20180923
  17. OXYCODONE [Concomitant]
     Active Substance: OXYCODONE
     Indication: Pain
     Dates: start: 20181030
  18. LOSARTAN [Concomitant]
     Active Substance: LOSARTAN
     Indication: Hypertension
     Dates: start: 20181212
  19. LIDOCAINE\PRILOCAINE [Concomitant]
     Active Substance: LIDOCAINE\PRILOCAINE
     Indication: Pain
     Dates: start: 20181204
  20. OMEGA 3 [Concomitant]
     Active Substance: CAPSAICIN
     Dates: start: 20190205
  21. GABAPENTIN [Concomitant]
     Active Substance: GABAPENTIN
     Indication: Peripheral sensory neuropathy
     Dates: start: 20190311
  22. HYDROCHLOROTHIAZIDE [Concomitant]
     Active Substance: HYDROCHLOROTHIAZIDE
     Indication: Hypertension
     Dates: start: 20190307
  23. LEVOTHYROXINE [Concomitant]
     Active Substance: LEVOTHYROXINE
     Indication: Hypothyroidism
     Dates: start: 20190205
  24. ONDANSETRON [Concomitant]
     Active Substance: ONDANSETRON
     Indication: Nausea
     Dates: start: 20181112

REACTIONS (1)
  - Vaginal cuff dehiscence [Recovered/Resolved]

NARRATIVE: CASE EVENT DATE: 20190619
